FAERS Safety Report 17226492 (Version 1)
Quarter: 2020Q1

REPORT INFORMATION
  Report Type: Report from Study
  Country: US (occurrence: US)
  Receive Date: 20200102
  Receipt Date: 20200102
  Transmission Date: 20200409
  Serious: Yes (Other)
  Sender: FDA-Public Use
  Company Number: US-OTSUKA-2019_042937

PATIENT
  Sex: Male

DRUGS (1)
  1. DEXTROMETHORPHAN/QUINIDINE [Suspect]
     Active Substance: DEXTROMETHORPHAN HYDROBROMIDE\QUINIDINE SULFATE
     Indication: MULTIPLE SCLEROSIS
     Dosage: UNK
     Route: 065

REACTIONS (10)
  - Feeling drunk [Not Recovered/Not Resolved]
  - Sudden hearing loss [Not Recovered/Not Resolved]
  - Pain [Not Recovered/Not Resolved]
  - Neck pain [Unknown]
  - Product use in unapproved indication [Unknown]
  - Multiple sclerosis [Not Recovered/Not Resolved]
  - Arthritis [Not Recovered/Not Resolved]
  - Fall [Unknown]
  - Muscular weakness [Unknown]
  - Balance disorder [Not Recovered/Not Resolved]

NARRATIVE: CASE EVENT DATE: 2019
